FAERS Safety Report 6384795-6 (Version None)
Quarter: 2009Q4

REPORT INFORMATION
  Report Type: 
  Country: None (occurrence: None)
  Receive Date: 20091001
  Receipt Date: 20090918
  Transmission Date: 20100525
  Serious: Yes (Hospitalization)
  Sender: FDA-Public Use
  Company Number: CA-GENENTECH-291129

PATIENT
  Sex: Female

DRUGS (1)
  1. XOLAIR [Suspect]
     Indication: ASTHMA
     Dosage: 300 UNK, 1/MONTH
     Route: 058
     Dates: start: 20080116

REACTIONS (4)
  - ASTHMA [None]
  - FATIGUE [None]
  - INSOMNIA [None]
  - MUSCLE RUPTURE [None]
